FAERS Safety Report 7611675-8 (Version None)
Quarter: 2011Q2

REPORT INFORMATION
  Report Type: 
  Country: None (occurrence: None)
  Receive Date: 20110630
  Receipt Date: 20110613
  Transmission Date: 20111010
  Serious: Yes (Hospitalization)
  Sender: FDA-Public Use
  Company Number: 2011PROUSA00388

PATIENT
  Age: 73 Year
  Sex: Male
  Weight: 132.4 kg

DRUGS (5)
  1. LASIX [Concomitant]
  2. GLYBURIDE [Concomitant]
  3. PROVENGE [Suspect]
     Indication: PROSTATE CANCER METASTATIC
     Dosage: 250ML, SINGLE, INTRAVENOUS; 250 ML, SINGLE, INTRAVENOUS
     Route: 042
     Dates: start: 20110603, end: 20110603
  4. PROVENGE [Suspect]
     Indication: PROSTATE CANCER METASTATIC
     Dosage: 250ML, SINGLE, INTRAVENOUS; 250 ML, SINGLE, INTRAVENOUS
     Route: 042
     Dates: start: 20110512, end: 20110512
  5. SPIRONOLACTONE [Concomitant]

REACTIONS (1)
  - CELLULITIS [None]
